FAERS Safety Report 6214902-7 (Version None)
Quarter: 2009Q2

REPORT INFORMATION
  Report Type: 
  Country: None (occurrence: None)
  Receive Date: 20090604
  Receipt Date: 20090318
  Transmission Date: 20091009
  Serious: No
  Sender: FDA-Public Use
  Company Number: US-BAYER-200917884NA

PATIENT
  Age: 22 Year
  Sex: Female
  Weight: 50 kg

DRUGS (5)
  1. ULTRAVIST 370 [Suspect]
     Indication: COMPUTERISED TOMOGRAM ABDOMEN
     Dosage: TOTAL DAILY DOSE: 500 ML  UNIT DOSE: 80 ML
     Route: 042
     Dates: start: 20090318, end: 20090318
  2. ULTRAVIST 370 [Suspect]
     Route: 048
     Dates: start: 20090318, end: 20090318
  3. LYBREL ORAL CONTRACEPTIVE [Concomitant]
  4. DORYX [Concomitant]
  5. RITALIN LA [Concomitant]

REACTIONS (2)
  - ERYTHEMA [None]
  - PRURITUS GENERALISED [None]
